FAERS Safety Report 8299679-6 (Version None)
Quarter: 2012Q2

REPORT INFORMATION
  Report Type: 
  Country: None (occurrence: None)
  Receive Date: 20120419
  Receipt Date: 20120409
  Transmission Date: 20120825
  Serious: Yes (Other)
  Sender: FDA-Public Use
  Company Number: JP-ELI_LILLY_AND_COMPANY-JP201201003260

PATIENT
  Age: 84 Year
  Sex: Female

DRUGS (6)
  1. LAC-B [Concomitant]
     Route: 048
  2. OPALMON [Concomitant]
  3. EVISTA [Suspect]
     Dosage: UNK
     Route: 048
  4. SEDAGASTON [Concomitant]
     Route: 048
  5. MICARDIS [Concomitant]
  6. LENDORMIN [Concomitant]
     Dosage: 0.25 MG, QD
     Route: 048

REACTIONS (2)
  - PLEURAL EFFUSION [None]
  - CARDIAC FAILURE [None]
